FAERS Safety Report 25347514 (Version 1)
Quarter: 2025Q2

REPORT INFORMATION
  Report Type: Spontaneous
  Country: DK (occurrence: DK)
  Receive Date: 20250522
  Receipt Date: 20250522
  Transmission Date: 20250717
  Serious: Yes (Hospitalization)
  Sender: ROCHE
  Company Number: None

PATIENT
  Age: 56 Year
  Sex: Male
  Weight: 104.6 kg

DRUGS (1)
  1. OCREVUS [Suspect]
     Active Substance: OCRELIZUMAB
     Indication: Multiple sclerosis
     Route: 058
     Dates: start: 20190308

REACTIONS (2)
  - Eye pain [Unknown]
  - Transverse sinus thrombosis [Recovering/Resolving]

NARRATIVE: CASE EVENT DATE: 20250301
